FAERS Safety Report 15597404 (Version 1)
Quarter: 2018Q4

REPORT INFORMATION
  Report Type: Spontaneous
  Country: JP (occurrence: JP)
  Receive Date: 20181108
  Receipt Date: 20181108
  Transmission Date: 20190205
  Serious: Yes (Hospitalization, Other)
  Sender: FDA-Public Use
  Company Number: JP-BRISTOL-MYERS SQUIBB COMPANY-BMS-2018-101093

PATIENT
  Age: 70 Year
  Sex: Female

DRUGS (3)
  1. GLIMEPIRIDE. [Concomitant]
     Active Substance: GLIMEPIRIDE
     Indication: DIABETES MELLITUS
     Dosage: 1 MG, UNK
     Route: 048
     Dates: start: 2014
  2. METGLUCO [Suspect]
     Active Substance: METFORMIN HYDROCHLORIDE
     Indication: DIABETES MELLITUS
     Dosage: 1000 MG, QD
     Route: 048
     Dates: start: 2014
  3. TOFOGLIFLOZIN [Concomitant]
     Active Substance: TOFOGLIFLOZIN
     Indication: BLOOD GLUCOSE ABNORMAL
     Dosage: 20 MG, UNK
     Route: 065
     Dates: start: 201502

REACTIONS (6)
  - Pancreatic carcinoma [Unknown]
  - Nausea [Unknown]
  - Duodenal ulcer [Unknown]
  - Melaena [Unknown]
  - Weight decreased [Unknown]
  - Ketosis [Recovering/Resolving]
